FAERS Safety Report 18349689 (Version 1)
Quarter: 2020Q4

REPORT INFORMATION
  Report Type: Spontaneous
  Country: US (occurrence: US)
  Receive Date: 20201006
  Receipt Date: 20201006
  Transmission Date: 20210114
  Serious: No
  Sender: FDA-Public Use
  Company Number: US-PFIZER INC-2020381135

PATIENT
  Age: 58 Year
  Sex: Female
  Weight: 61.23 kg

DRUGS (2)
  1. SUTENT [Suspect]
     Active Substance: SUNITINIB MALATE
     Indication: GASTROINTESTINAL STROMAL TUMOUR
     Dosage: 37.5 MG, DAILY (3 CAPSULES)
     Route: 048
     Dates: start: 20200609
  2. SUTENT [Suspect]
     Active Substance: SUNITINIB MALATE
     Dosage: 25 MG, DAILY (2 CAPSULES)
     Route: 048

REACTIONS (6)
  - Fatigue [Unknown]
  - Upper respiratory tract infection [Unknown]
  - Burning sensation [Unknown]
  - Urinary tract infection [Unknown]
  - Diarrhoea [Unknown]
  - Intentional product use issue [Unknown]

NARRATIVE: CASE EVENT DATE: 20200609
